FAERS Safety Report 11662509 (Version 1)
Quarter: 2015Q4

REPORT INFORMATION
  Report Type: Spontaneous
  Country: US (occurrence: US)
  Receive Date: 20151027
  Receipt Date: 20151027
  Transmission Date: 20160304
  Serious: No
  Sender: FDA-Public Use
  Company Number: US-MEDA-2013040054

PATIENT
  Age: 81 Year
  Sex: Male
  Weight: 70 kg

DRUGS (3)
  1. ASTEPRO [Suspect]
     Active Substance: AZELASTINE HYDROCHLORIDE
     Indication: SINUSITIS
     Dates: start: 20130410
  2. COUMADIN [Concomitant]
     Active Substance: WARFARIN SODIUM
  3. ASTEPRO [Suspect]
     Active Substance: AZELASTINE HYDROCHLORIDE
     Indication: MIDDLE EAR EFFUSION
     Dates: start: 20130410

REACTIONS (2)
  - Diarrhoea [Not Recovered/Not Resolved]
  - Product use issue [Not Recovered/Not Resolved]

NARRATIVE: CASE EVENT DATE: 20130411
